FAERS Safety Report 8975736 (Version 1)
Quarter: 2012Q4

REPORT INFORMATION
  Report Type: 
  Country: US (occurrence: US)
  Receive Date: 20121219
  Receipt Date: 20121219
  Transmission Date: 20130627
  Serious: No
  Sender: FDA-Public Use
  Company Number: US-AMGEN-USASP2012066679

PATIENT
  Age: 74 Year
  Sex: Male
  Weight: 104.31 kg

DRUGS (2)
  1. XGEVA [Suspect]
     Indication: METASTASES TO BONE
     Dosage: 120 mg, qmo
     Route: 058
     Dates: start: 201206
  2. TAXOTERE [Concomitant]
     Indication: CHEMOTHERAPY
     Dosage: UNK

REACTIONS (1)
  - Incorrect route of drug administration [Not Recovered/Not Resolved]
